FAERS Safety Report 7538472-6 (Version None)
Quarter: 2011Q2

REPORT INFORMATION
  Report Type: 
  Country: None (occurrence: None)
  Receive Date: 20110609
  Receipt Date: 20110601
  Transmission Date: 20111010
  Serious: Yes (Other)
  Sender: FDA-Public Use
  Company Number: US-RB-028229-11

PATIENT
  Age: 57 Year
  Sex: Male

DRUGS (1)
  1. SUBOXONE [Suspect]
     Indication: PRODUCT USED FOR UNKNOWN INDICATION
     Dosage: SUBLINGUAL FILM / DOSING INFORMATION UNKNOWN
     Route: 065

REACTIONS (5)
  - HYPERSOMNIA [None]
  - HALLUCINATION, VISUAL [None]
  - DRUG DEPENDENCE [None]
  - FEELING COLD [None]
  - THROAT IRRITATION [None]
